FAERS Safety Report 6835677-4 (Version None)
Quarter: 2010Q3

REPORT INFORMATION
  Report Type: 
  Country: None (occurrence: None)
  Receive Date: 20100713
  Receipt Date: 20100701
  Transmission Date: 20110219
  Serious: Yes (Hospitalization, Other)
  Sender: FDA-Public Use
  Company Number: JP-PFIZER INC-2010028788

PATIENT
  Age: 56 Year
  Sex: Male

DRUGS (1)
  1. AZULFIDINE [Suspect]
     Indication: RHEUMATOID ARTHRITIS
     Dosage: 500 MG, 2X/DAY
     Route: 048
     Dates: start: 20090201

REACTIONS (2)
  - HYPERPARATHYROIDISM PRIMARY [None]
  - PARATHYROID TUMOUR BENIGN [None]
